FAERS Safety Report 15268077 (Version 1)
Quarter: 2018Q3

REPORT INFORMATION
  Report Type: Spontaneous
  Country: BG (occurrence: BG)
  Receive Date: 20180812
  Receipt Date: 20180812
  Transmission Date: 20181010
  Serious: Yes (Hospitalization)
  Sender: FDA-Public Use
  Company Number: BG-TEVA-2018-BG-938540

PATIENT
  Age: 78 Year
  Sex: Male
  Weight: 80 kg

DRUGS (5)
  1. TRIFAS [Concomitant]
     Indication: PRODUCT USED FOR UNKNOWN INDICATION
  2. BISOPROLOL [Suspect]
     Active Substance: BISOPROLOL
     Indication: PRODUCT USED FOR UNKNOWN INDICATION
     Route: 065
  3. SINTROM [Concomitant]
     Active Substance: ACENOCOUMAROL
     Indication: PRODUCT USED FOR UNKNOWN INDICATION
     Route: 065
  4. EXVIERA [Suspect]
     Active Substance: DASABUVIR
     Indication: HEPATITIS C
     Dosage: PER SMPC
     Route: 048
     Dates: start: 20180123
  5. VIEKIRAX [Suspect]
     Active Substance: OMBITASVIR\PARITAPREVIR\RITONAVIR
     Indication: HEPATITIS C
     Dosage: PER SMPC
     Route: 048
     Dates: start: 20180123

REACTIONS (3)
  - Ascites [Recovered/Resolved]
  - Blood bilirubin increased [Recovered/Resolved]
  - Oedema [Recovered/Resolved]

NARRATIVE: CASE EVENT DATE: 20180207
